FAERS Safety Report 9268546 (Version 1)
Quarter: 2013Q2

REPORT INFORMATION
  Report Type: Spontaneous
  Country: US (occurrence: US)
  Receive Date: 20130502
  Receipt Date: 20130502
  Transmission Date: 20140414
  Serious: Yes (Other)
  Sender: FDA-Public Use
  Company Number: CHPA2012US010596

PATIENT
  Age: 72 Year
  Sex: Female

DRUGS (4)
  1. VOLTAREN GEL [Suspect]
     Indication: OSTEOARTHRITIS
     Dosage: 4 G, BID
     Route: 061
  2. VOLTAREN GEL [Suspect]
     Indication: MUSCULOSKELETAL PAIN
  3. FLEXERIL [Suspect]
     Indication: FIBROMYALGIA
     Dosage: UNK, UNK
  4. RESTORIL [Concomitant]

REACTIONS (7)
  - Rotator cuff syndrome [Unknown]
  - Nausea [Recovered/Resolved]
  - Musculoskeletal pain [Unknown]
  - Joint stiffness [Unknown]
  - Condition aggravated [Unknown]
  - Off label use [Unknown]
  - Underdose [Unknown]
